FAERS Safety Report 17433003 (Version 4)
Quarter: 2020Q1

REPORT INFORMATION
  Report Type: Report from Study
  Country: ES (occurrence: ES)
  Receive Date: 20200219
  Receipt Date: 20200327
  Transmission Date: 20200409
  Serious: Yes (Hospitalization)
  Sender: FDA-Public Use
  Company Number: ES-BRISTOL-MYERS SQUIBB COMPANY-BMS-2020-013278

PATIENT
  Age: 59 Year
  Sex: Male
  Weight: 66 kg

DRUGS (18)
  1. CLEXANE [Concomitant]
     Active Substance: ENOXAPARIN SODIUM
     Indication: PROPHYLAXIS
     Dosage: 40 MILLIGRAM
     Route: 058
     Dates: start: 20191112
  2. BLINDED IPILIMUMAB [Suspect]
     Active Substance: IPILIMUMAB
     Indication: RENAL CELL CARCINOMA
     Dosage: UNK
     Route: 065
     Dates: start: 20191114
  3. NISTATIN [Concomitant]
     Active Substance: NYSTATIN
     Indication: PRODUCT USED FOR UNKNOWN INDICATION
     Dosage: 15 ABSENT
     Route: 048
     Dates: start: 20200128
  4. MORPHINE [Concomitant]
     Active Substance: MORPHINE
     Indication: PRODUCT USED FOR UNKNOWN INDICATION
     Dosage: 10 MILLIGRAM
     Route: 058
     Dates: start: 20191231
  5. NOCTAMID [Concomitant]
     Active Substance: LORMETAZEPAM
     Indication: PRODUCT USED FOR UNKNOWN INDICATION
     Dosage: 1 MILLIGRAM
     Route: 048
     Dates: start: 20191012
  6. FRESUBIN [CAFFEINE;CARBOHYDRATES NOS;FATS NOS;FIBRE, DIETARY;MINERALS [Concomitant]
     Indication: PRODUCT USED FOR UNKNOWN INDICATION
     Route: 048
     Dates: start: 20191226
  7. DEXCLORFENIRAMINA [Concomitant]
     Active Substance: DEXCHLORPHENIRAMINE
     Indication: PRODUCT USED FOR UNKNOWN INDICATION
     Dosage: 5 MILLIGRAM
     Route: 065
     Dates: start: 20200212, end: 20200217
  8. FENTANIL [Concomitant]
     Active Substance: FENTANYL
     Indication: PRODUCT USED FOR UNKNOWN INDICATION
     Dosage: 50 ABSENT
     Route: 062
     Dates: start: 20200101
  9. VITAL 1.5 KCAL [Concomitant]
     Indication: PRODUCT USED FOR UNKNOWN INDICATION
     Dosage: 300 ABSENT
     Route: 048
     Dates: start: 20191205
  10. ENEMA CASEN [PHOSPHORIC ACID SODIUM;SODIUM PHOSPHATE DIBASIC] [Concomitant]
     Indication: PRODUCT USED FOR UNKNOWN INDICATION
     Dosage: 250 ABSENT
     Route: 054
     Dates: start: 20191205
  11. MOVENTIG [Concomitant]
     Active Substance: NALOXEGOL OXALATE
     Indication: PROPHYLAXIS
     Dosage: 25 MILLIGRAM
     Route: 048
     Dates: start: 20200103
  12. NAPROXEN. [Concomitant]
     Active Substance: NAPROXEN
     Indication: PRODUCT USED FOR UNKNOWN INDICATION
     Route: 048
     Dates: start: 20191129
  13. OMEPRAZOLE [OMEPRAZOLE SODIUM] [Concomitant]
     Active Substance: OMEPRAZOLE SODIUM
     Indication: PROPHYLAXIS
     Route: 048
     Dates: start: 20150529
  14. BLINDED PLACEBO [Suspect]
     Active Substance: INVESTIGATIONAL PRODUCT
     Indication: RENAL CELL CARCINOMA
     Dosage: UNK
     Route: 065
     Dates: start: 20191114
  15. NIVOLUMAB [Suspect]
     Active Substance: NIVOLUMAB
     Indication: RENAL CELL CARCINOMA
     Dosage: 100 MILLILITER
     Route: 065
     Dates: start: 20191114
  16. SILVEDERMA [Concomitant]
     Indication: PRODUCT USED FOR UNKNOWN INDICATION
     Dosage: 3 ABSENT
     Route: 061
     Dates: start: 20191211
  17. BISOPROLOL [Concomitant]
     Active Substance: BISOPROLOL
     Indication: PRODUCT USED FOR UNKNOWN INDICATION
     Dosage: 5 MILLIGRAM, THERAPEUTIC USE
     Route: 048
     Dates: start: 20191128
  18. PARACETAMOL [Concomitant]
     Active Substance: ACETAMINOPHEN
     Indication: PRODUCT USED FOR UNKNOWN INDICATION
     Dosage: 3 GRAM
     Route: 042
     Dates: start: 20200212

REACTIONS (1)
  - Mucosal inflammation [Recovered/Resolved]

NARRATIVE: CASE EVENT DATE: 20200212
